FAERS Safety Report 5464051-0 (Version None)
Quarter: 2007Q3

REPORT INFORMATION
  Report Type: 
  Country: None (occurrence: None)
  Receive Date: 20070921
  Receipt Date: 20070910
  Transmission Date: 20080115
  Serious: Yes (Hospitalization)
  Sender: FDA-Public Use
  Company Number: FR-JNJFOC-20070901545

PATIENT
  Age: 73 Year
  Sex: Male

DRUGS (10)
  1. TAVANIC [Suspect]
     Route: 065
  2. TAVANIC [Suspect]
     Route: 065
  3. TAVANIC [Suspect]
     Indication: OSTEITIS
     Route: 065
  4. RIFADIN [Concomitant]
     Indication: OSTEITIS
     Route: 065
  5. DALACINE [Concomitant]
     Route: 065
  6. BACTRIM [Concomitant]
     Route: 065
  7. ELISOR [Concomitant]
     Route: 065
  8. FONZYLANE [Concomitant]
     Route: 065
  9. ACARBOSE [Concomitant]
     Route: 065
  10. DIAMICRON [Concomitant]
     Route: 065

REACTIONS (2)
  - PYREXIA [None]
  - WEIGHT DECREASED [None]
